FAERS Safety Report 5333284-6 (Version None)
Quarter: 2007Q2

REPORT INFORMATION
  Report Type: 
  Country: None (occurrence: None)
  Receive Date: 20070521
  Receipt Date: 20070511
  Transmission Date: 20071010
  Serious: Yes (Other)
  Sender: FDA-Public Use
  Company Number: 013287

PATIENT
  Age: 39 Year
  Sex: Male
  Weight: 54.9 kg

DRUGS (2)
  1. PLAN B [Suspect]
     Indication: CONTRACEPTION
     Dosage: SEE IMAGE
     Route: 048
     Dates: start: 20070402, end: 20070403
  2. PLAN B [Suspect]
     Indication: CONTRACEPTION
     Dosage: SEE IMAGE
     Route: 048
     Dates: start: 20070506, end: 20070506

REACTIONS (7)
  - ABDOMINAL PAIN [None]
  - ABORTION SPONTANEOUS [None]
  - BACK PAIN [None]
  - BREAST PAIN [None]
  - DIZZINESS [None]
  - UNINTENDED PREGNANCY [None]
  - VAGINAL HAEMORRHAGE [None]
